FAERS Safety Report 10925284 (Version 4)
Quarter: 2015Q2

REPORT INFORMATION
  Report Type: Spontaneous
  Country: US (occurrence: US)
  Receive Date: 20150318
  Receipt Date: 20150603
  Transmission Date: 20150821
  Serious: No
  Sender: FDA-Public Use
  Company Number: US-PFIZER INC-2015091268

PATIENT
  Age: 37 Year
  Sex: Female
  Weight: 52.15 kg

DRUGS (1)
  1. XALKORI [Suspect]
     Active Substance: CRIZOTINIB
     Indication: LUNG NEOPLASM MALIGNANT
     Dosage: 250 MG, 2X/DAY
     Route: 048
     Dates: start: 20150223, end: 20150520

REACTIONS (12)
  - Syncope [Unknown]
  - Disease progression [Unknown]
  - Vomiting [Unknown]
  - Dehydration [Unknown]
  - Hyperaesthesia [Unknown]
  - Constipation [Unknown]
  - Nausea [Unknown]
  - Photopsia [Unknown]
  - Eye pain [Unknown]
  - Rash [Unknown]
  - Vitreous floaters [Unknown]
  - Lung neoplasm malignant [Unknown]

NARRATIVE: CASE EVENT DATE: 20150306
